FAERS Safety Report 6941789-7 (Version None)
Quarter: 2010Q3

REPORT INFORMATION
  Report Type: 
  Country: None (occurrence: None)
  Receive Date: 20100826
  Receipt Date: 20100823
  Transmission Date: 20110219
  Serious: Yes (Hospitalization, Other)
  Sender: FDA-Public Use
  Company Number: US-ASTRAZENECA-2006UW24796

PATIENT
  Age: 14144 Day
  Sex: Female
  Weight: 95.3 kg

DRUGS (43)
  1. SEROQUEL [Suspect]
     Indication: SCHIZOPHRENIA, PARANOID TYPE
     Dosage: 25-300 MG
     Route: 048
     Dates: start: 19980211, end: 20000421
  2. SEROQUEL [Suspect]
     Dosage: 100-600 MG
     Route: 048
     Dates: start: 20000110, end: 20060406
  3. SEROQUEL [Suspect]
     Dosage: 25-300 MG
     Route: 048
     Dates: start: 20030601, end: 20060614
  4. GEODON [Concomitant]
     Dosage: 60 MG TO 80 MG
     Dates: start: 20050301, end: 20070501
  5. HALDOL [Concomitant]
     Dosage: 5 MG TO 10 MG
     Dates: start: 20020906, end: 20060310
  6. HALDOL [Concomitant]
     Dosage: 2 - 10 MG
     Route: 048
  7. NAVANE [Concomitant]
     Dates: start: 19950301, end: 19960301
  8. RISPERDAL [Concomitant]
     Dosage: 2 MG TO 3 MG
     Dates: start: 19960717, end: 19990308
  9. RISPERDAL [Concomitant]
     Dosage: 2 MG TO 3 MG
     Dates: start: 20041028
  10. STELAZINE [Concomitant]
     Dates: start: 19990901
  11. ABILIFY [Concomitant]
     Dates: start: 20030501
  12. ZYPREXA [Concomitant]
     Dates: start: 19970724, end: 19970828
  13. ZYPREXA [Concomitant]
     Dates: start: 20030601
  14. ZOLOFT [Concomitant]
  15. TRAZODONE HCL [Concomitant]
  16. DEPAKOTE [Concomitant]
     Dosage: 250- 100 MG
     Route: 065
  17. DEPAKOTE [Concomitant]
  18. WELLBUTRIN [Concomitant]
  19. CLONAZEPAM [Concomitant]
     Dates: start: 19961001
  20. PAXIL [Concomitant]
     Route: 048
  21. COGENTIN [Concomitant]
     Route: 048
  22. GLUCOPHAGE [Concomitant]
     Dosage: 500 - 1000 MG
     Route: 048
  23. AMINOPHYLLINE [Concomitant]
     Route: 065
  24. INSULIN [Concomitant]
     Indication: DIABETES MELLITUS
     Dosage: STRENGTH 50- 100 UNITS
     Route: 058
  25. CIPRO [Concomitant]
     Route: 048
  26. KLONOPIN [Concomitant]
     Dosage: 0.5 - 35 MG
     Route: 048
  27. LESCOL [Concomitant]
     Dosage: 20 - 40 MG
     Route: 048
  28. GLUCOTROL XL [Concomitant]
     Dosage: 5- 20 MG
     Route: 048
  29. ISORDIL [Concomitant]
     Route: 048
  30. KEFLEX [Concomitant]
     Route: 065
  31. NITROSTAT [Concomitant]
     Route: 060
  32. HUMULIN R [Concomitant]
     Indication: DIABETES MELLITUS
     Dosage: 60 U, TWO TIMES A DAY
     Route: 058
  33. TENORMIN [Concomitant]
     Dosage: STRENGTH 25, 50 MG
     Route: 048
     Dates: start: 20060612
  34. AMBIEN [Concomitant]
     Route: 048
  35. ACETAMINOPHEN [Concomitant]
     Route: 048
  36. ASPIRIN [Concomitant]
     Route: 002
  37. HEPARIN SODIUM [Concomitant]
     Route: 058
  38. ZOCOR [Concomitant]
     Indication: CHEST PAIN
     Route: 048
  39. BENZTROPINE MESYLATE [Concomitant]
     Route: 048
  40. PEPCID [Concomitant]
     Route: 065
  41. LANTUS [Concomitant]
     Dosage: STRENGTH 25, 50 UNITS
     Route: 065
  42. TRICOR [Concomitant]
     Route: 065
  43. ARIXTRA [Concomitant]
     Route: 058
     Dates: start: 20060612

REACTIONS (8)
  - ACUTE CORONARY SYNDROME [None]
  - CARDIAC DISORDER [None]
  - CATARACT [None]
  - CATARACT NUCLEAR [None]
  - CHEST PAIN [None]
  - DIABETES MELLITUS INADEQUATE CONTROL [None]
  - DIABETIC RETINOPATHY [None]
  - TYPE 2 DIABETES MELLITUS [None]
